FAERS Safety Report 7930510-1 (Version None)
Quarter: 2011Q4

REPORT INFORMATION
  Report Type: 
  Country: None (occurrence: None)
  Receive Date: 20111108
  Receipt Date: 20101109
  Transmission Date: 20120403
  Serious: Yes (Hospitalization)
  Sender: FDA-Public Use
  Company Number: PHHY2010US77896

PATIENT
  Age: 75 Year
  Sex: Male

DRUGS (8)
  1. DOCUSATE (DOCUSATE) [Concomitant]
  2. OMEPRAZOLE [Concomitant]
  3. LEVOTHYROXINE SODIUM [Concomitant]
  4. ZOMETA [Suspect]
     Indication: PROSTATE CANCER METASTATIC
     Dosage: 3 MG Q4 WEEKS
     Dates: start: 20100728
  5. ZOMETA [Suspect]
     Indication: PROSTATE CANCER METASTATIC
     Dosage: 3 MG Q4 WEEKS
     Dates: start: 20100825
  6. ZOMETA [Suspect]
     Indication: PROSTATE CANCER METASTATIC
     Dosage: 3 MG Q4 WEEKS
     Dates: start: 20100630
  7. LORTAB [Concomitant]
  8. ELIGARD [Concomitant]

REACTIONS (2)
  - RENAL FAILURE [None]
  - DIALYSIS [None]
